FAERS Safety Report 21757913 (Version 1)
Quarter: 2022Q4

REPORT INFORMATION
  Report Type: Spontaneous
  Country: US (occurrence: None)
  Receive Date: 20221221
  Receipt Date: 20221221
  Transmission Date: 20230113
  Serious: Yes (Other)
  Sender: FDA-Public Use
  Company Number: US-ROCHE-2874627

PATIENT
  Age: 78 Year
  Sex: Female

DRUGS (1)
  1. ACTIVASE [Suspect]
     Active Substance: ALTEPLASE
     Indication: Product used for unknown indication
     Route: 065
     Dates: start: 20210718, end: 20210718

REACTIONS (2)
  - Angioedema [Unknown]
  - Flushing [Unknown]

NARRATIVE: CASE EVENT DATE: 20210718
